FAERS Safety Report 10136859 (Version 1)
Quarter: 2014Q2

REPORT INFORMATION
  Report Type: Spontaneous
  Country: US (occurrence: None)
  Receive Date: 20140428
  Receipt Date: 20140428
  Transmission Date: 20141212
  Serious: No
  Sender: FDA-Public Use
  Company Number: None

PATIENT
  Age: 70 Year
  Sex: Male

DRUGS (1)
  1. CIMZIA [Suspect]
     Dosage: INJECT 21 SYRUNGES?EVERY FOUR WEEKS REGIONAL ENTERITIS OF UNSPECIFIED SITE
     Route: 058
     Dates: start: 20111017

REACTIONS (1)
  - Pulmonary fibrosis [None]
